FAERS Safety Report 4504257-8 (Version None)
Quarter: 2004Q4

REPORT INFORMATION
  Report Type: 
  Country: None (occurrence: None)
  Receive Date: 20041116
  Receipt Date: 20041116
  Transmission Date: 20050328
  Serious: Yes (Life-Threatening, Hospitalization)
  Sender: FDA-Public Use
  Company Number: None

PATIENT
  Age: 55 Year
  Sex: Male
  Weight: 72.3 kg

DRUGS (14)
  1. IBUPROFEN [Suspect]
     Indication: PAIN
     Dosage: 400 MG TID PRN [REVIEWED 9/15/03+ 4/21/04]
     Dates: start: 20030915
  2. IBUPROFEN [Suspect]
     Indication: PAIN
     Dosage: 400 MG TID PRN [REVIEWED 9/15/03+ 4/21/04]
     Dates: start: 20040421
  3. ASPIRIN [Suspect]
     Indication: PROPHYLAXIS
     Dosage: DAILY
  4. LISINOPRIL [Concomitant]
  5. OXYCODONE HCL 5 MG/APAP [Concomitant]
  6. CLOBETASOL PROPIONATE [Concomitant]
  7. SIMVASTATIN [Concomitant]
  8. TEMAZEPAM [Concomitant]
  9. HYDROCHLOROTHIAZIDE [Concomitant]
  10. CLOPIDOGREL BISULFATE [Concomitant]
  11. FOLIC ACID [Concomitant]
  12. DILTIAZEM (INWOOD) [Concomitant]
  13. MULTI-VITAMIN [Concomitant]
  14. NICOTINE [Concomitant]

REACTIONS (1)
  - GASTROINTESTINAL HAEMORRHAGE [None]
